FAERS Safety Report 5935767-4 (Version None)
Quarter: 2008Q4

REPORT INFORMATION
  Report Type: 
  Country: None (occurrence: None)
  Receive Date: 20081029
  Receipt Date: 20081029
  Transmission Date: 20090506
  Serious: No
  Sender: FDA-Public Use
  Company Number: None

PATIENT
  Age: 82 Year
  Sex: Male
  Weight: 110.68 kg

DRUGS (2)
  1. SIMVASTATIN [Suspect]
     Indication: HYPERLIPIDAEMIA
     Dosage: 20 MG EVERY DAY PO
     Route: 048
     Dates: start: 20080819, end: 20081008
  2. NIACIN [Suspect]
     Dosage: 500 MG EVERY DAY PO
     Route: 048
     Dates: start: 20080819, end: 20081008

REACTIONS (1)
  - RASH [None]
